FAERS Safety Report 11868237 (Version 1)
Quarter: 2015Q4

REPORT INFORMATION
  Report Type: Spontaneous
  Country: GB (occurrence: GB)
  Receive Date: 20151224
  Receipt Date: 20151224
  Transmission Date: 20160305
  Serious: Yes (Hospitalization, Other)
  Sender: FDA-Public Use
  Company Number: GB-WATSON-2015-14991

PATIENT
  Age: 57 Year
  Sex: Male

DRUGS (1)
  1. VERAPAMIL (UNKNOWN) [Suspect]
     Active Substance: VERAPAMIL HYDROCHLORIDE
     Indication: CLUSTER HEADACHE
     Dosage: 80 MG, TID
     Route: 048
     Dates: start: 201503, end: 201503

REACTIONS (2)
  - Methaemoglobinaemia [Recovered/Resolved]
  - Hypoxia [Unknown]

NARRATIVE: CASE EVENT DATE: 20150326
